FAERS Safety Report 9797350 (Version 2)
Quarter: 2014Q1

REPORT INFORMATION
  Report Type: Spontaneous
  Country: JP (occurrence: None)
  Receive Date: 20131230
  Receipt Date: 20140122
  Transmission Date: 20141002
  Serious: Yes (Other)
  Sender: FDA-Public Use
  Company Number: JP-20130119

PATIENT
  Age: 31 Year
  Sex: Female

DRUGS (2)
  1. LIPIODOL ULTRA FLUIDE [Suspect]
     Indication: HYSTEROSALPINGOGRAM
     Dates: start: 20110610, end: 20110610
  2. LIPIODOL ULTRA FLUIDE [Suspect]
     Dates: start: 20110610, end: 20110610

REACTIONS (4)
  - Blood thyroid stimulating hormone abnormal [None]
  - Benign hydatidiform mole [None]
  - Contrast media reaction [None]
  - Pregnancy [None]
